FAERS Safety Report 9699229 (Version 2)
Quarter: 2013Q4

REPORT INFORMATION
  Report Type: Spontaneous
  Country: US (occurrence: US)
  Receive Date: 20131120
  Receipt Date: 20131120
  Transmission Date: 20140711
  Serious: No
  Sender: FDA-Public Use
  Company Number: US-GILEAD-2008-0015098

PATIENT
  Age: 52 Year
  Sex: Female
  Weight: 56.7 kg

DRUGS (9)
  1. LETAIRIS [Suspect]
     Indication: PULMONARY ARTERIAL HYPERTENSION
     Route: 048
     Dates: start: 20071208
  2. REVATIO [Concomitant]
     Indication: PULMONARY ARTERIAL HYPERTENSION
     Route: 048
  3. WARFARIN [Concomitant]
     Indication: ANTICOAGULANT THERAPY
     Route: 048
  4. CIMETIDINE [Concomitant]
     Route: 048
  5. LASIX [Concomitant]
     Indication: PULMONARY ARTERIAL HYPERTENSION
     Route: 048
  6. VITAMIN E [Concomitant]
     Indication: VITAMIN SUPPLEMENTATION
     Route: 048
  7. VITAMIN B [Concomitant]
     Indication: VITAMIN SUPPLEMENTATION
     Route: 048
  8. CALCIUM + D [Concomitant]
     Indication: VITAMIN SUPPLEMENTATION
     Route: 048
  9. COQ10 [Concomitant]
     Indication: ENZYME SUPPLEMENTATION
     Route: 048

REACTIONS (2)
  - Local swelling [Recovered/Resolved]
  - Nasal congestion [Not Recovered/Not Resolved]
